FAERS Safety Report 24350780 (Version 1)
Quarter: 2024Q3

REPORT INFORMATION
  Report Type: Spontaneous
  Country: US (occurrence: US)
  Receive Date: 20240923
  Receipt Date: 20240923
  Transmission Date: 20241017
  Serious: Yes (Life-Threatening, Hospitalization, Other)
  Sender: PFIZER
  Company Number: US-PFIZER INC-PV202400122612

PATIENT
  Age: 84 Year
  Sex: Male
  Weight: 97 kg

DRUGS (6)
  1. HEPARIN SODIUM [Interacting]
     Active Substance: HEPARIN SODIUM
     Indication: Anticoagulant therapy
     Dosage: 5000 IU
     Route: 040
  2. HEPARIN SODIUM [Interacting]
     Active Substance: HEPARIN SODIUM
     Dosage: 2000 IU
     Route: 040
  3. HEPARIN SODIUM [Interacting]
     Active Substance: HEPARIN SODIUM
     Dosage: 3000 IU
     Route: 040
  4. HEPARIN SODIUM [Interacting]
     Active Substance: HEPARIN SODIUM
     Dosage: 6000 IU
     Route: 040
  5. HEPARIN SODIUM [Interacting]
     Active Substance: HEPARIN SODIUM
     Dosage: 5000 IU
     Route: 040
  6. ANDEXANET ALFA [Interacting]
     Active Substance: ANDEXANET ALFA
     Indication: Procoagulant therapy
     Dosage: 400 MG BOLUS FOLLOWED BY A 4 MG/MINUTE INFUSION
     Route: 040

REACTIONS (1)
  - Drug interaction [Unknown]
